FAERS Safety Report 7050082-6 (Version None)
Quarter: 2010Q4

REPORT INFORMATION
  Report Type: 
  Country: None (occurrence: None)
  Receive Date: 20101012
  Receipt Date: 20101005
  Transmission Date: 20110411
  Serious: No
  Sender: FDA-Public Use
  Company Number: 2010SP050166

PATIENT
  Age: 70 Year
  Sex: Female
  Weight: 90.2658 kg

DRUGS (8)
  1. MIRALAX [Suspect]
     Indication: COLONOSCOPY
     Dosage: 238 GM;ONCE;PO
     Route: 048
     Dates: start: 20100801, end: 20100801
  2. MIRALAX [Suspect]
     Indication: HAEMORRHOID OPERATION
     Dosage: 238 GM;ONCE;PO
     Route: 048
     Dates: start: 20100801, end: 20100801
  3. LISINOPRIL [Concomitant]
  4. CELEBREX [Concomitant]
  5. NEXIUM [Concomitant]
  6. SYNTHROID [Concomitant]
  7. ATENOLOL [Concomitant]
  8. PREMARIN [Concomitant]

REACTIONS (6)
  - ABDOMINAL DISTENSION [None]
  - ABDOMINAL PAIN [None]
  - BLOOD PRESSURE INCREASED [None]
  - CONVULSION [None]
  - MALAISE [None]
  - VOMITING [None]
